FAERS Safety Report 5811672-9 (Version None)
Quarter: 2008Q3

REPORT INFORMATION
  Report Type: 
  Country: None (occurrence: None)
  Receive Date: 20080716
  Receipt Date: 20080715
  Transmission Date: 20090109
  Serious: Yes (Other)
  Sender: FDA-Public Use
  Company Number: A0737581A

PATIENT
  Age: 63 Year
  Sex: Male

DRUGS (11)
  1. ALLI [Suspect]
     Dates: start: 20080201, end: 20080603
  2. AMIODARONE HCL [Suspect]
  3. ASPIRIN [Concomitant]
  4. DIGOXIN [Concomitant]
  5. AVAPRO [Concomitant]
  6. ATENOLOL [Concomitant]
  7. PROTONIX [Concomitant]
  8. PLAVIX [Concomitant]
  9. ISOSORBIDE DINITRATE [Concomitant]
  10. FEXOFENADINE [Concomitant]
  11. ZOCOR [Concomitant]

REACTIONS (2)
  - ADVERSE DRUG REACTION [None]
  - ATRIAL FIBRILLATION [None]
